FAERS Safety Report 11493910 (Version 1)
Quarter: 2015Q3

REPORT INFORMATION
  Report Type: Spontaneous
  Country: US (occurrence: US)
  Receive Date: 20150911
  Receipt Date: 20150911
  Transmission Date: 20151125
  Serious: No
  Sender: FDA-Public Use
  Company Number: US-ROCHE-1015149

PATIENT
  Sex: Male

DRUGS (3)
  1. RIBAVIRIN. [Suspect]
     Active Substance: RIBAVIRIN
     Indication: CHRONIC HEPATITIS C
     Route: 048
     Dates: start: 20110923
  2. METAMUCIL [Concomitant]
     Active Substance: PLANTAGO SEED
     Indication: DIVERTICULITIS
     Route: 065
  3. PEGASYS [Suspect]
     Active Substance: PEGINTERFERON ALFA-2A
     Indication: CHRONIC HEPATITIS C
     Route: 058
     Dates: start: 20110923

REACTIONS (14)
  - Memory impairment [Unknown]
  - Red blood cell count decreased [Unknown]
  - Skin fissures [Unknown]
  - Irritability [Unknown]
  - Energy increased [Unknown]
  - Insomnia [Unknown]
  - Food craving [Unknown]
  - Myalgia [Unknown]
  - Dry skin [Unknown]
  - Alopecia [Unknown]
  - Oral herpes [Unknown]
  - Arthralgia [Unknown]
  - Weight decreased [Unknown]
  - Rash [Unknown]
